FAERS Safety Report 10512806 (Version 4)
Quarter: 2015Q1

REPORT INFORMATION
  Report Type: Report from Study
  Country: FI (occurrence: FI)
  Receive Date: 20141013
  Receipt Date: 20150311
  Transmission Date: 20150720
  Serious: Yes (Life-Threatening, Hospitalization, Other)
  Sender: FDA-Public Use
  Company Number: FI-ROCHE-1471282

PATIENT
  Age: 62 Year
  Sex: Female

DRUGS (8)
  1. XELODA [Suspect]
     Active Substance: CAPECITABINE
     Indication: COLON CANCER
     Route: 048
     Dates: start: 20140811, end: 20140821
  2. METFORMIN [Concomitant]
     Active Substance: METFORMIN HYDROCHLORIDE
     Indication: BLOOD GLUCOSE INCREASED
     Route: 048
     Dates: end: 20140822
  3. RAMIPRIL. [Concomitant]
     Active Substance: RAMIPRIL
     Indication: BLOOD PRESSURE
     Dosage: 2, 5 MG
     Route: 048
     Dates: end: 20140822
  4. OXALIPLATIN. [Concomitant]
     Active Substance: OXALIPLATIN
     Indication: COLON CANCER
     Route: 065
     Dates: start: 20140811, end: 20140811
  5. GRANISETRON [Concomitant]
     Active Substance: GRANISETRON
     Indication: NAUSEA
     Route: 048
     Dates: start: 20140811, end: 20140822
  6. ORLOC [Concomitant]
     Active Substance: BISOPROLOL FUMARATE
     Indication: BLOOD PRESSURE
     Dosage: 10/25 MG
     Route: 048
     Dates: end: 20140822
  7. PRIMPERAN [Concomitant]
     Active Substance: METOCLOPRAMIDE HYDROCHLORIDE
     Indication: NAUSEA
     Dosage: 10-20 MG
     Route: 048
     Dates: start: 20140811, end: 20140822
  8. LOPERAMIDE [Concomitant]
     Active Substance: LOPERAMIDE
     Indication: DIARRHOEA
     Dosage: 2-4 MG
     Route: 048
     Dates: start: 20140811, end: 20140822

REACTIONS (18)
  - Oral discharge [Recovered/Resolved]
  - Gastrointestinal erosion [Unknown]
  - Vitamin D decreased [Recovered/Resolved]
  - Photopsia [Recovered/Resolved]
  - Onychomycosis [Recovered/Resolved]
  - Hypomagnesaemia [Recovered/Resolved]
  - Tremor [Recovered/Resolved]
  - Altered visual depth perception [Recovered/Resolved]
  - Faecal calprotectin increased [Unknown]
  - Neuralgia [Recovered/Resolved]
  - Weight decreased [Recovered/Resolved]
  - Muscle atrophy [Recovered/Resolved]
  - Blood calcium decreased [Recovered/Resolved]
  - Toxicity to various agents [Recovering/Resolving]
  - Hypokalaemia [Recovered/Resolved]
  - Pancytopenia [Recovering/Resolving]
  - Vision blurred [Recovered/Resolved]
  - Tooth loss [Recovered/Resolved]

NARRATIVE: CASE EVENT DATE: 20140820
